FAERS Safety Report 8240304-8 (Version None)
Quarter: 2012Q1

REPORT INFORMATION
  Report Type: 
  Country: None (occurrence: None)
  Receive Date: 20120328
  Receipt Date: 20120320
  Transmission Date: 20120608
  Serious: Yes (Hospitalization, Other)
  Sender: FDA-Public Use
  Company Number: DE-ELI_LILLY_AND_COMPANY-DE201203005475

PATIENT
  Age: 62 Year
  Sex: Male

DRUGS (4)
  1. VITAMINS NOS [Concomitant]
  2. FORTEO [Suspect]
     Dosage: UNK, QD
     Route: 058
     Dates: start: 20110919
  3. INSULIN [Concomitant]
  4. METFORMIN HCL [Concomitant]

REACTIONS (2)
  - FEMORAL NECK FRACTURE [None]
  - FALL [None]
